FAERS Safety Report 12681815 (Version 5)
Quarter: 2016Q3

REPORT INFORMATION
  Report Type: Spontaneous
  Country: JP (occurrence: JP)
  Receive Date: 20160824
  Receipt Date: 20160921
  Transmission Date: 20161109
  Serious: Yes (Hospitalization)
  Sender: FDA-Public Use
  Company Number: JP-ASTRAZENECA-2016SE89694

PATIENT
  Age: 29173 Day
  Sex: Male
  Weight: 65 kg

DRUGS (4)
  1. BAYASPIRIN [Concomitant]
     Active Substance: ASPIRIN
     Dosage: DOSE UNKNOWN
     Route: 065
     Dates: end: 2016
  2. BICALUTAMIDE. [Concomitant]
     Active Substance: BICALUTAMIDE
     Indication: PROSTATE CANCER
     Route: 048
     Dates: start: 20160713
  3. ZOLADEX LA [Suspect]
     Active Substance: GOSERELIN ACETATE
     Indication: PROSTATE CANCER
     Route: 058
     Dates: start: 20160713, end: 20160713
  4. ZOLADEX LA [Suspect]
     Active Substance: GOSERELIN ACETATE
     Indication: PROSTATE CANCER
     Route: 058
     Dates: start: 20160815, end: 20160816

REACTIONS (4)
  - Anaemia [Unknown]
  - Injection site haemorrhage [Recovered/Resolved]
  - Injection site haematoma [Recovering/Resolving]
  - Administration site pain [Recovering/Resolving]

NARRATIVE: CASE EVENT DATE: 20160815
